FAERS Safety Report 5143452-4 (Version None)
Quarter: 2006Q4

REPORT INFORMATION
  Report Type: 
  Country: None (occurrence: None)
  Receive Date: 20061101
  Receipt Date: 20061101
  Transmission Date: 20070319
  Serious: Yes (Life-Threatening, Hospitalization)
  Sender: FDA-Public Use
  Company Number: None

PATIENT
  Age: 34 Year
  Sex: Female
  Weight: 65.7716 kg

DRUGS (2)
  1. EFFEXOR XR [Suspect]
     Indication: DYSTHYMIC DISORDER
     Dosage: 225 MG  1 X DAILY  ORAL
     Route: 048
     Dates: start: 20010101
  2. CYMBALTA [Suspect]
     Indication: SEASONAL AFFECTIVE DISORDER
     Dosage: 60  1 X DAILY  ORAL
     Route: 048
     Dates: start: 20061001

REACTIONS (2)
  - DRUG PRESCRIBING ERROR [None]
  - DRUG WITHDRAWAL SYNDROME [None]
